FAERS Safety Report 8540698-X (Version None)
Quarter: 2012Q3

REPORT INFORMATION
  Report Type: 
  Country: None (occurrence: None)
  Receive Date: 20120726
  Receipt Date: 20120718
  Transmission Date: 20120928
  Serious: Yes (Hospitalization)
  Sender: FDA-Public Use
  Company Number: US-VERTEX PHARMACEUTICALS INC.-AE-2012-010760

PATIENT
  Sex: Male

DRUGS (3)
  1. RIBAVIRIN [Concomitant]
     Indication: HEPATITIS C
     Dates: start: 20120120, end: 20120706
  2. PEGASYS [Concomitant]
     Indication: HEPATITIS C
     Dates: start: 20120120, end: 20120629
  3. INCIVEK [Suspect]
     Indication: HEPATITIS C
     Route: 048
     Dates: start: 20120120, end: 20120413

REACTIONS (6)
  - FATIGUE [None]
  - DIABETIC KETOACIDOSIS [None]
  - BLOOD POTASSIUM DECREASED [None]
  - PLATELET COUNT DECREASED [None]
  - WEIGHT DECREASED [None]
  - DRY MOUTH [None]
